FAERS Safety Report 7952667-9 (Version None)
Quarter: 2011Q4

REPORT INFORMATION
  Report Type: 
  Country: None (occurrence: None)
  Receive Date: 20111201
  Receipt Date: 20111124
  Transmission Date: 20120403
  Serious: Yes (Hospitalization)
  Sender: FDA-Public Use
  Company Number: FR-PFIZER INC-2011126870

PATIENT
  Age: 66 Year
  Sex: Male

DRUGS (8)
  1. ATORVASTATIN CALCIUM [Suspect]
     Indication: AORTIC BYPASS
     Dosage: 1 DF, 1X/DAY
     Route: 048
     Dates: start: 20100801, end: 20110519
  2. SYMBICORT [Concomitant]
     Dosage: UNK
  3. OMACOR [Concomitant]
     Dosage: UNK
  4. PERINDOPRIL ERBUMINE [Suspect]
     Indication: AORTIC BYPASS
     Dosage: 1 DF, 1X/DAY
     Route: 048
     Dates: start: 20100801, end: 20110519
  5. PROCORALAN [Concomitant]
     Dosage: UNK
  6. ASPIRIN [Concomitant]
     Dosage: UNK
  7. PANTOPRAZOLE SODIUM [Suspect]
     Indication: PROPHYLAXIS AGAINST GASTROINTESTINAL ULCER
     Dosage: 40 MG, 1X/DAY
     Route: 048
     Dates: start: 20100801, end: 20110519
  8. SPIRIVA [Concomitant]
     Dosage: UNK

REACTIONS (2)
  - THROMBOCYTOPENIA [None]
  - OFF LABEL USE [None]
